FAERS Safety Report 14141163 (Version 2)
Quarter: 2017Q4

REPORT INFORMATION
  Report Type: Spontaneous
  Country: ES (occurrence: ES)
  Receive Date: 20171030
  Receipt Date: 20171103
  Transmission Date: 20180321
  Serious: Yes (Life-Threatening, Hospitalization)
  Sender: FDA-Public Use
  Company Number: ES-PFIZER INC-2017465060

PATIENT
  Age: 55 Year
  Sex: Female

DRUGS (6)
  1. PARACETAMOL [Concomitant]
     Active Substance: ACETAMINOPHEN
     Indication: BACK PAIN
     Dosage: UNK
     Dates: start: 20170210, end: 20170217
  2. LORMETAZEPAM [Concomitant]
     Active Substance: LORMETAZEPAM
     Dosage: UNK
     Dates: start: 20130112
  3. SERTRALINE HCL [Suspect]
     Active Substance: SERTRALINE HYDROCHLORIDE
     Indication: DEPRESSION
     Dosage: 100 MG, DAILY
     Route: 048
     Dates: start: 20130112
  4. IBUPROFEN. [Interacting]
     Active Substance: IBUPROFEN
     Indication: BACK PAIN
     Dosage: 400 MG, 3X/DAY
     Route: 048
     Dates: start: 20170208, end: 20170227
  5. LISALGIL (METAMIZOLE SODIUM) [Interacting]
     Active Substance: METAMIZOLE SODIUM
     Indication: BACK PAIN
     Dosage: 575 MG, 3X/DAY
     Route: 048
     Dates: start: 20170210, end: 20170227
  6. ALPRAZOLAM. [Concomitant]
     Active Substance: ALPRAZOLAM
     Dosage: UNK
     Dates: start: 20130112

REACTIONS (4)
  - Hypovolaemic shock [Recovered/Resolved]
  - Upper gastrointestinal haemorrhage [Recovered/Resolved]
  - Gastric ulcer [Recovered/Resolved]
  - Drug interaction [Unknown]

NARRATIVE: CASE EVENT DATE: 20170227
